FAERS Safety Report 5427672-7 (Version None)
Quarter: 2007Q3

REPORT INFORMATION
  Report Type: 
  Country: None (occurrence: None)
  Receive Date: 20070823
  Receipt Date: 20070810
  Transmission Date: 20080115
  Serious: Yes (Hospitalization)
  Sender: FDA-Public Use
  Company Number: 2007BI011278

PATIENT
  Age: 42 Year
  Sex: Female

DRUGS (2)
  1. NATALIZUMAB [Suspect]
     Indication: MULTIPLE SCLEROSIS
     Dosage: 300 MG; QM; IV
     Route: 042
     Dates: start: 20070223, end: 20070523
  2. NATALIZUMAB [Suspect]
     Indication: MULTIPLE SCLEROSIS
     Dosage: 150 MG; QM; IV
     Route: 042
     Dates: start: 20070629

REACTIONS (3)
  - ALVEOLITIS ALLERGIC [None]
  - MALAISE [None]
  - PYREXIA [None]
